FAERS Safety Report 7700612-3 (Version None)
Quarter: 2011Q3

REPORT INFORMATION
  Report Type: 
  Country: None (occurrence: None)
  Receive Date: 20110822
  Receipt Date: 20110822
  Transmission Date: 20111222
  Serious: Yes (Hospitalization)
  Sender: FDA-Public Use
  Company Number: None

PATIENT
  Sex: Female

DRUGS (2)
  1. METHOTREXATE [Concomitant]
     Indication: RHEUMATOID ARTHRITIS
  2. REMICADE [Suspect]
     Indication: RHEUMATOID ARTHRITIS

REACTIONS (9)
  - INFUSION RELATED REACTION [None]
  - VOMITING [None]
  - RESPIRATORY ARREST [None]
  - IMPAIRED WORK ABILITY [None]
  - MALAISE [None]
  - ALOPECIA [None]
  - CONDITION AGGRAVATED [None]
  - URTICARIA [None]
  - RHEUMATOID ARTHRITIS [None]
